FAERS Safety Report 4500583-7 (Version None)
Quarter: 2004Q4

REPORT INFORMATION
  Report Type: 
  Country: None (occurrence: None)
  Receive Date: 20041115
  Receipt Date: 20040119
  Transmission Date: 20050328
  Serious: Yes (Death, Hospitalization, Disabling, Other)
  Sender: FDA-Public Use
  Company Number: IT-ABBOTT-04P-083-0247673-00

PATIENT
  Sex: Male
  Weight: 65 kg

DRUGS (10)
  1. HUMIRA [Suspect]
     Indication: RHEUMATOID ARTHRITIS
     Dosage: 40 MG
     Route: 058
     Dates: start: 20030702, end: 20031009
  2. METHOTREXATE [Concomitant]
     Indication: RHEUMATOID ARTHRITIS
     Dates: start: 19920101, end: 19940101
  3. METHYLPREDNISOLONE [Concomitant]
     Indication: RHEUMATOID ARTHRITIS
     Dates: end: 20031120
  4. AMLODIPINE BESYLATE [Concomitant]
     Indication: HYPERTENSION
     Dates: end: 20031113
  5. FOSINOPRIL SODIUM [Concomitant]
     Indication: HYPERTENSION
     Dates: end: 20031119
  6. OMEPRAZOLE [Concomitant]
     Indication: PROPHYLAXIS AGAINST GASTROINTESTINAL ULCER
     Dates: end: 20031119
  7. LORAZEPAM [Concomitant]
     Indication: INSOMNIA
     Dates: end: 20031119
  8. DEVEGIL [Concomitant]
     Indication: CHOLELITHIASIS
     Dates: end: 20031119
  9. LEFLUNOMIDE [Concomitant]
     Indication: RHEUMATOID ARTHRITIS
     Route: 048
     Dates: start: 20010101, end: 20020101
  10. LEFLUNOMIDE [Concomitant]
     Route: 048
     Dates: start: 20030101, end: 20031112

REACTIONS (11)
  - ATRIOVENTRICULAR BLOCK [None]
  - BRADYCARDIA [None]
  - BRONCHOPNEUMONIA [None]
  - COMA [None]
  - CYANOSIS [None]
  - HYPOTENSION [None]
  - RENAL FAILURE [None]
  - RESPIRATORY FAILURE [None]
  - SPINAL MUSCULAR ATROPHY [None]
  - SPONDYLOLISTHESIS [None]
  - TACHYCARDIA [None]
